FAERS Safety Report 6139019-1 (Version None)
Quarter: 2009Q1

REPORT INFORMATION
  Report Type: 
  Country: None (occurrence: None)
  Receive Date: 20090327
  Receipt Date: 20090312
  Transmission Date: 20090719
  Serious: Yes (Other)
  Sender: FDA-Public Use
  Company Number: 2009S1004382

PATIENT
  Age: 29 Year
  Sex: Female

DRUGS (2)
  1. DICLOFENAC (DICLOFENAC) [Suspect]
     Indication: ANALGESIA
     Dosage: ORAL
     Route: 048
  2. CO-DYDRAMOL [Concomitant]

REACTIONS (14)
  - ASCITES [None]
  - BLOOD ALBUMIN DECREASED [None]
  - DUODENAL ULCER PERFORATION [None]
  - ENTEROCUTANEOUS FISTULA [None]
  - FEEDING TUBE COMPLICATION [None]
  - GASTROINTESTINAL SOUNDS ABNORMAL [None]
  - HAEMOGLOBIN DECREASED [None]
  - HEART RATE INCREASED [None]
  - METABOLIC ACIDOSIS [None]
  - PITTING OEDEMA [None]
  - POSTOPERATIVE WOUND COMPLICATION [None]
  - SEPSIS [None]
  - WOUND SECRETION [None]
  - X-RAY GASTROINTESTINAL TRACT ABNORMAL [None]
